FAERS Safety Report 7686720-4 (Version None)
Quarter: 2011Q3

REPORT INFORMATION
  Report Type: 
  Country: None (occurrence: None)
  Receive Date: 20110816
  Receipt Date: 20110811
  Transmission Date: 20111222
  Serious: Yes (Death)
  Sender: FDA-Public Use
  Company Number: PL-CELGENEUS-129-CCAZA-11061275

PATIENT
  Sex: Female
  Weight: 79 kg

DRUGS (14)
  1. OMEPRAZOLE [Concomitant]
     Dosage: 1500 MILLIGRAM
     Route: 041
     Dates: start: 20110516, end: 20110519
  2. LACTULOSA [Concomitant]
     Indication: CONSTIPATION
     Dosage: 15 MILLILITER
     Route: 048
     Dates: start: 20110516, end: 20110516
  3. CIPROFLOXACIN [Concomitant]
     Indication: INFECTION PROPHYLAXIS
     Dosage: 1000 MILLIGRAM
     Route: 048
     Dates: start: 20110426
  4. METRONIDAZOLE [Concomitant]
     Dosage: 1500 MILLIGRAM
     Route: 048
     Dates: start: 20110504, end: 20110507
  5. THEOVENT [Concomitant]
     Indication: CHRONIC OBSTRUCTIVE PULMONARY DISEASE
     Dosage: 600 MILLIGRAM
     Route: 048
     Dates: start: 20050101
  6. ZYRTEC [Concomitant]
     Dosage: 10 MILLIGRAM
     Route: 048
     Dates: start: 20110516, end: 20110516
  7. HEVIRAN [Concomitant]
     Indication: ANTIVIRAL PROPHYLAXIS
     Dosage: 1600 MILLIGRAM
     Route: 048
     Dates: start: 20110513, end: 20110519
  8. ENARENAL [Concomitant]
     Indication: HYPERTENSION
     Dosage: 40 MILLIGRAM
     Route: 061
     Dates: start: 20010101
  9. ZOFRAN [Concomitant]
     Dosage: 8 MILLIGRAM
     Route: 041
     Dates: start: 20110513, end: 20110519
  10. TABLETK USPOKAJAJACE [Concomitant]
     Indication: SLEEP DISORDER
     Route: 048
     Dates: start: 20100101
  11. OMEPRAZOLE [Concomitant]
     Dosage: 1500 MILLIGRAM
     Route: 048
     Dates: start: 20110506, end: 20110512
  12. CLEMASTINUM [Concomitant]
     Dosage: 10 MILLIGRAM
     Route: 041
     Dates: start: 20110517, end: 20110519
  13. CYCLONAMINE [Concomitant]
     Dosage: 1500 MILLIGRAM
     Route: 041
     Dates: start: 20110516, end: 20110519
  14. AZACITIDINE [Suspect]
     Dosage: 75 MILLIGRAM/SQ. METER
     Route: 065
     Dates: start: 20110513, end: 20110519

REACTIONS (1)
  - DEATH [None]
